FAERS Safety Report 16822502 (Version 2)
Quarter: 2019Q4

REPORT INFORMATION
  Report Type: Spontaneous
  Country: US (occurrence: US)
  Receive Date: 20190918
  Receipt Date: 20191014
  Transmission Date: 20200122
  Serious: Yes (Other)
  Sender: FDA-Public Use
  Company Number: US-BAYER-2019-170586

PATIENT
  Age: 25 Year
  Sex: Female
  Weight: 63.49 kg

DRUGS (1)
  1. KYLEENA [Suspect]
     Active Substance: LEVONORGESTREL
     Indication: CONTRACEPTION
     Dosage: 17.5 MCG/24HR, CONT
     Route: 015
     Dates: start: 20190311, end: 20190904

REACTIONS (2)
  - Drug ineffective [None]
  - Ectopic pregnancy with contraceptive device [None]

NARRATIVE: CASE EVENT DATE: 20190723
